FAERS Safety Report 15347799 (Version 1)
Quarter: 2018Q3

REPORT INFORMATION
  Report Type: Spontaneous
  Country: US (occurrence: US)
  Receive Date: 20180829
  Receipt Date: 20180829
  Transmission Date: 20181010
  Serious: Yes (Hospitalization)
  Sender: FDA-Public Use
  Company Number: None

PATIENT
  Age: 70 Year
  Sex: Female

DRUGS (2)
  1. ENBREL [Suspect]
     Active Substance: ETANERCEPT
     Dosage: ?          OTHER FREQUENCY:WEEKLY;?
     Route: 058
     Dates: start: 20180727, end: 20180821
  2. METHOTREXATE 2.5MG [Concomitant]
     Active Substance: METHOTREXATE
     Dates: start: 20180728, end: 20180821

REACTIONS (1)
  - Surgery [None]

NARRATIVE: CASE EVENT DATE: 20180821
